FAERS Safety Report 18884684 (Version 1)
Quarter: 2021Q1

REPORT INFORMATION
  Report Type: Spontaneous
  Country: US (occurrence: US)
  Receive Date: 20210212
  Receipt Date: 20210212
  Transmission Date: 20210420
  Serious: Yes (Other)
  Sender: FDA-Public Use
  Company Number: None

PATIENT
  Sex: Female

DRUGS (1)
  1. OLANZAPINE TABS 5 MG [Suspect]
     Active Substance: OLANZAPINE

REACTIONS (1)
  - Weight increased [None]
